FAERS Safety Report 10789995 (Version 5)
Quarter: 2015Q4

REPORT INFORMATION
  Report Type: Spontaneous
  Country: US (occurrence: US)
  Receive Date: 20150212
  Receipt Date: 20151222
  Transmission Date: 20160304
  Serious: Yes (Hospitalization, Other)
  Sender: FDA-Public Use
  Company Number: US-GLAXOSMITHKLINE-A1075675A

PATIENT
  Age: 60 Year
  Sex: Male
  Weight: 52.61 kg

DRUGS (17)
  1. VENTOLIN [Suspect]
     Active Substance: ALBUTEROL SULFATE
     Indication: BRONCHITIS CHRONIC
     Dosage: UNK
  2. OMEPRAZOLE. [Concomitant]
     Active Substance: OMEPRAZOLE
  3. VENTOLIN [Suspect]
     Active Substance: ALBUTEROL SULFATE
     Indication: ASTHMA
     Dosage: TWO PUFFS, THREE TIMES DAILY.90 MCG
     Route: 055
     Dates: start: 20120111
  4. VENTOLIN [Suspect]
     Active Substance: ALBUTEROL SULFATE
     Indication: DYSPNOEA
     Dosage: UNK
  5. VENTOLIN [Suspect]
     Active Substance: ALBUTEROL SULFATE
     Indication: EMPHYSEMA
     Dosage: 90 ?G, UNK
  6. VENTOLIN [Suspect]
     Active Substance: ALBUTEROL SULFATE
     Dosage: 1 PUFF(S), UNK
     Route: 055
  7. FOLIC ACID. [Concomitant]
     Active Substance: FOLIC ACID
  8. VENTOLIN [Suspect]
     Active Substance: ALBUTEROL SULFATE
     Indication: GENERAL PHYSICAL HEALTH DETERIORATION
     Dosage: 2 PUFF(S), UNK
     Route: 055
  9. LISINOPRIL HYDRATE [Concomitant]
  10. VITAMIN B1 [Concomitant]
     Active Substance: THIAMINE HYDROCHLORIDE
  11. GABAPENTIN. [Concomitant]
     Active Substance: GABAPENTIN
  12. DOCUSATE [Concomitant]
     Active Substance: DOCUSATE
  13. METOPROLOL TARTRATE. [Concomitant]
     Active Substance: METOPROLOL TARTRATE
  14. VENTOLIN [Suspect]
     Active Substance: ALBUTEROL SULFATE
     Indication: CHRONIC OBSTRUCTIVE PULMONARY DISEASE
     Dosage: 2 PUFF(S), UNK
     Route: 055
     Dates: start: 2008
  15. VENTOLIN [Suspect]
     Active Substance: ALBUTEROL SULFATE
     Indication: RESPIRATORY DISORDER
     Dosage: 1 TO 2 PUFFS, EVERY 4 TO 6 HRS, PRN
  16. ASPIRIN. [Concomitant]
     Active Substance: ASPIRIN
  17. ATORVASTATIN [Concomitant]
     Active Substance: ATORVASTATIN

REACTIONS (22)
  - Myocardial infarction [Unknown]
  - Paraesthesia [Not Recovered/Not Resolved]
  - Tooth extraction [Unknown]
  - Exostosis [Unknown]
  - Peripheral swelling [Not Recovered/Not Resolved]
  - Productive cough [Not Recovered/Not Resolved]
  - Malaise [Not Recovered/Not Resolved]
  - Chest pain [Recovering/Resolving]
  - Insomnia [Not Recovered/Not Resolved]
  - Intentional product misuse [Unknown]
  - Treatment noncompliance [Unknown]
  - Cerebrovascular accident [Recovered/Resolved]
  - Dyspnoea [Not Recovered/Not Resolved]
  - Vomiting [Unknown]
  - Drug administration error [Not Recovered/Not Resolved]
  - Overdose [Not Recovered/Not Resolved]
  - Lung disorder [Not Recovered/Not Resolved]
  - Bronchitis chronic [Unknown]
  - Loss of consciousness [Unknown]
  - Drug ineffective [Not Recovered/Not Resolved]
  - Prescribed underdose [Unknown]
  - Intentional underdose [Unknown]

NARRATIVE: CASE EVENT DATE: 2012
